FAERS Safety Report 26005312 (Version 3)
Quarter: 2025Q4

REPORT INFORMATION
  Report Type: Spontaneous
  Country: US (occurrence: US)
  Receive Date: 20251106
  Receipt Date: 20251212
  Transmission Date: 20260118
  Serious: No
  Sender: LEO PHARM
  Company Number: US-LEO Pharma-383972

PATIENT
  Age: 18 Year
  Sex: Female

DRUGS (2)
  1. ADBRY [Suspect]
     Active Substance: TRALOKINUMAB-LDRM
     Indication: Eczema
     Dosage: EXPIRATION DATE: 31-01-2028??TREATMENT ONGOING??TITRATION DOSING: 600MG (2-300MG PENS) SUBCUTANEOUS
     Route: 058
     Dates: start: 202509
  2. ADBRY [Suspect]
     Active Substance: TRALOKINUMAB-LDRM
     Indication: Eczema
     Dosage: 300MG PEN SUBCUTANEOUS EVERY 2 WEEKS (10/10/2025, SUBSEQUENT DATES UNKNOWN).
     Route: 058
     Dates: start: 20251010

REACTIONS (5)
  - Pruritus [Unknown]
  - Product quality issue [Unknown]
  - Circumstance or information capable of leading to medication error [Unknown]
  - Loss of personal independence in daily activities [Unknown]
  - Injection site pain [Unknown]

NARRATIVE: CASE EVENT DATE: 20251027
